FAERS Safety Report 25650438 (Version 2)
Quarter: 2025Q3

REPORT INFORMATION
  Report Type: Spontaneous
  Country: US (occurrence: US)
  Receive Date: 20250806
  Receipt Date: 20250811
  Transmission Date: 20251021
  Serious: No
  Sender: GRIFOLS
  Company Number: US-IGSA-BIG0036967

PATIENT
  Age: 65 Year
  Sex: Male
  Weight: 74.84 kg

DRUGS (2)
  1. GAMUNEX-C [Suspect]
     Active Substance: HUMAN IMMUNOGLOBULIN G
     Indication: Chronic inflammatory demyelinating polyradiculoneuropathy
     Dosage: 80 GRAM, Q.4WK.
     Route: 042
     Dates: start: 20200221
  2. GAMUNEX-C [Suspect]
     Active Substance: HUMAN IMMUNOGLOBULIN G
     Dosage: 80 GRAM, Q.4WK.
     Route: 042
     Dates: start: 20250719

REACTIONS (2)
  - Rash [Recovered/Resolved]
  - Pruritus [Recovered/Resolved]

NARRATIVE: CASE EVENT DATE: 20250719
